FAERS Safety Report 20434361 (Version 4)
Quarter: 2024Q4

REPORT INFORMATION
  Report Type: Report from Study
  Country: US (occurrence: US)
  Receive Date: 20220206
  Receipt Date: 20241218
  Transmission Date: 20250115
  Serious: No
  Sender: NOVARTIS
  Company Number: US-NOVARTISTESTPH-NVSC2022US022877

PATIENT
  Age: 91 Year
  Sex: Female
  Weight: 47.63 kg

DRUGS (2)
  1. ILARIS [Suspect]
     Active Substance: CANAKINUMAB
     Indication: Product availability issue
     Dosage: 150 MG, EVERY TWO MONTH
     Route: 058
     Dates: start: 20211129, end: 20220124
  2. ILARIS [Suspect]
     Active Substance: CANAKINUMAB
     Indication: Cryopyrin associated periodic syndrome

REACTIONS (5)
  - Pyrexia [Unknown]
  - Malaise [Unknown]
  - Hypersensitivity [Not Recovered/Not Resolved]
  - Product dose omission issue [Unknown]
  - Chills [Unknown]

NARRATIVE: CASE EVENT DATE: 20220125
